FAERS Safety Report 4471969-4 (Version None)
Quarter: 2004Q4

REPORT INFORMATION
  Report Type: 
  Country: None (occurrence: None)
  Receive Date: 20041007
  Receipt Date: 20040921
  Transmission Date: 20050328
  Serious: Yes (Hospitalization)
  Sender: FDA-Public Use
  Company Number: 2004PK01373

PATIENT
  Age: 77 Year
  Sex: Female
  Weight: 59 kg

DRUGS (2)
  1. FASLODEX [Suspect]
     Indication: BREAST CANCER
     Dosage: 250 MG Q4WK IM
     Route: 030
     Dates: start: 20040201
  2. PAMIDRONAT [Concomitant]

REACTIONS (4)
  - BREAST CANCER [None]
  - CEREBROVASCULAR ACCIDENT [None]
  - DISEASE RECURRENCE [None]
  - SPEECH DISORDER [None]
